FAERS Safety Report 7860365-5 (Version None)
Quarter: 2011Q4

REPORT INFORMATION
  Report Type: 
  Country: None (occurrence: None)
  Receive Date: 20111027
  Receipt Date: 20111014
  Transmission Date: 20120403
  Serious: Yes (Other)
  Sender: FDA-Public Use
  Company Number: US-ELI_LILLY_AND_COMPANY-US201102006716

PATIENT
  Sex: Female

DRUGS (5)
  1. FORTEO [Suspect]
     Dosage: 20 UG, QD
  2. FORTEO [Suspect]
     Dosage: 20 UG, QD
  3. FORTEO [Suspect]
     Indication: OSTEOPOROSIS
     Dosage: 20 UG, QD
     Route: 065
  4. FORTEO [Suspect]
     Dosage: 20 UG, QD
     Dates: start: 20110430
  5. FORTEO [Suspect]
     Dosage: 20 UG, QD

REACTIONS (15)
  - BONE NEOPLASM MALIGNANT [None]
  - LIGAMENT SPRAIN [None]
  - SPINAL COLUMN INJURY [None]
  - INFLUENZA [None]
  - FALL [None]
  - DRUG DOSE OMISSION [None]
  - INTENTIONAL DRUG MISUSE [None]
  - PROTEIN TOTAL INCREASED [None]
  - COUGH [None]
  - SINUSITIS [None]
  - VIRAL INFECTION [None]
  - BODY TEMPERATURE INCREASED [None]
  - MALAISE [None]
  - BACTERIAL INFECTION [None]
  - BACK INJURY [None]
